FAERS Safety Report 8014471-5 (Version None)
Quarter: 2011Q4

REPORT INFORMATION
  Report Type: 
  Country: None (occurrence: None)
  Receive Date: 20111229
  Receipt Date: 20111222
  Transmission Date: 20120403
  Serious: Yes (Hospitalization)
  Sender: FDA-Public Use
  Company Number: BR-ROCHE-803192

PATIENT
  Sex: Male
  Weight: 52.5 kg

DRUGS (3)
  1. AVASTIN [Suspect]
     Indication: GASTRIC CANCER
     Dosage: FREQUENCY : D1,FORM : INFUSION
     Route: 042
  2. XELODA [Suspect]
     Indication: GASTRIC CANCER
     Dosage: FREQUENCY : D1-14,LAST DOSE PRIOR TO SAE: 07 SEPTEMBER 2011
     Route: 048
     Dates: start: 20081205, end: 20110913
  3. CISPLATIN [Suspect]
     Indication: GASTRIC CANCER
     Dosage: FORM : INFUSION, FREQUENCY: D1
     Route: 042

REACTIONS (1)
  - HYPERKALAEMIA [None]
